FAERS Safety Report 12900166 (Version 2)
Quarter: 2019Q4

REPORT INFORMATION
  Report Type: Spontaneous
  Country: US (occurrence: US)
  Receive Date: 20161101
  Receipt Date: 20191018
  Transmission Date: 20200122
  Serious: Yes (Other)
  Sender: FDA-Public Use
  Company Number: US-PFIZER INC-2016507632

PATIENT
  Age: 73 Year
  Sex: Male

DRUGS (10)
  1. VIAGRA [Suspect]
     Active Substance: SILDENAFIL CITRATE
     Indication: ERECTILE DYSFUNCTION
     Dosage: 50 MG, ONCE A WEEK
     Dates: start: 20000309, end: 20030909
  2. LISINOPRIL. [Concomitant]
     Active Substance: LISINOPRIL
     Dosage: UNK
  3. MULTI VITAMINS + MINERALS [Concomitant]
     Active Substance: MINERALS\VITAMINS
     Dosage: UNK
  4. VITAMIN D3 [Concomitant]
     Active Substance: CHOLECALCIFEROL
     Dosage: UNK
  5. IRON [Concomitant]
     Active Substance: IRON
     Dosage: UNK
  6. TIMOLOL. [Concomitant]
     Active Substance: TIMOLOL
     Dosage: UNK
  7. CLONIDINE HCL [Concomitant]
     Active Substance: CLONIDINE HYDROCHLORIDE
     Dosage: UNK
     Dates: start: 20140903
  8. VIAGRA [Suspect]
     Active Substance: SILDENAFIL CITRATE
     Dosage: 100 MG, ONCE A WEEK
     Route: 048
     Dates: start: 20091008, end: 20140715
  9. WELLBUTRIN [Concomitant]
     Active Substance: BUPROPION HYDROCHLORIDE
     Dosage: UNK
     Dates: start: 20121107
  10. XARELTO [Concomitant]
     Active Substance: RIVAROXABAN
     Dosage: UNK

REACTIONS (3)
  - Malignant melanoma in situ [Unknown]
  - Temporal arteritis [Not Recovered/Not Resolved]
  - Malignant melanoma [Unknown]

NARRATIVE: CASE EVENT DATE: 20100205
